FAERS Safety Report 8459838-6 (Version None)
Quarter: 2012Q2

REPORT INFORMATION
  Report Type: 
  Country: None (occurrence: None)
  Receive Date: 20120622
  Receipt Date: 20120615
  Transmission Date: 20120825
  Serious: Yes (Hospitalization)
  Sender: FDA-Public Use
  Company Number: PHFR2012GB003317

PATIENT
  Sex: Female

DRUGS (4)
  1. CLOZARIL [Suspect]
     Indication: SCHIZOPHRENIA
     Route: 048
     Dates: start: 20111005
  2. VALPROATE SODIUM [Concomitant]
     Dosage: 1400 MG, DAILY
     Route: 048
  3. HYOSCINE HBR HYT [Concomitant]
     Dosage: 300 UG, DAILY
  4. CLOZARIL [Suspect]
     Dosage: 300 MG, DAILY
     Route: 048

REACTIONS (2)
  - CHRONIC OBSTRUCTIVE PULMONARY DISEASE [None]
  - DYSPNOEA [None]
